FAERS Safety Report 7338596-2 (Version None)
Quarter: 2011Q1

REPORT INFORMATION
  Report Type: 
  Country: None (occurrence: None)
  Receive Date: 20110308
  Receipt Date: 20110228
  Transmission Date: 20110831
  Serious: Yes (Hospitalization)
  Sender: FDA-Public Use
  Company Number: US-ASTRAZENECA-2011SE11067

PATIENT
  Age: 34 Year
  Sex: Male
  Weight: 124.7 kg

DRUGS (2)
  1. SEROQUEL [Suspect]
     Indication: BIPOLAR DISORDER
     Route: 048
     Dates: start: 20070101
  2. CYMBALTA [Concomitant]
     Indication: DEPRESSION
     Route: 048

REACTIONS (1)
  - SPINAL LAMINECTOMY [None]
